FAERS Safety Report 7961449-3 (Version None)
Quarter: 2011Q4

REPORT INFORMATION
  Report Type: 
  Country: None (occurrence: None)
  Receive Date: 20111121
  Receipt Date: 20110928
  Transmission Date: 20120403
  Serious: No
  Sender: FDA-Public Use
  Company Number: 1000024288

PATIENT
  Age: 53 Year
  Sex: Male

DRUGS (6)
  1. PROPRANOLOL [Concomitant]
  2. VIIBRYD [Suspect]
     Indication: DEPRESSION
     Dosage: 10 MG (10 MG,1 IN 1 D),ORAL ; 20 MG (20 MG,1 IN 1 D),ORAL ; 40 MG (40 MG,1 IN 1 D),ORAL
     Route: 048
     Dates: start: 20110901, end: 20110901
  3. VIIBRYD [Suspect]
     Indication: DEPRESSION
     Dosage: 10 MG (10 MG,1 IN 1 D),ORAL ; 20 MG (20 MG,1 IN 1 D),ORAL ; 40 MG (40 MG,1 IN 1 D),ORAL
     Route: 048
     Dates: start: 20110901, end: 20110901
  4. VIIBRYD [Suspect]
     Indication: DEPRESSION
     Dosage: 10 MG (10 MG,1 IN 1 D),ORAL ; 20 MG (20 MG,1 IN 1 D),ORAL ; 40 MG (40 MG,1 IN 1 D),ORAL
     Route: 048
     Dates: start: 20110901
  5. LIPITOR [Concomitant]
  6. COZAAR [Concomitant]

REACTIONS (3)
  - DIARRHOEA [None]
  - AMNESIA [None]
  - INSOMNIA [None]
